FAERS Safety Report 12374770 (Version 1)
Quarter: 2016Q2

REPORT INFORMATION
  Report Type: Spontaneous
  Country: US (occurrence: US)
  Receive Date: 20160517
  Receipt Date: 20160517
  Transmission Date: 20160815
  Serious: No
  Sender: FDA-Public Use
  Company Number: US-PFIZER INC-2016231605

PATIENT

DRUGS (2)
  1. TOVIAZ [Suspect]
     Active Substance: FESOTERODINE FUMARATE
     Indication: HYPERHIDROSIS
     Dosage: 8 MG, UNK (MORE THAN 3 MO 8 MG)
  2. BUTRANS [Concomitant]
     Active Substance: BUPRENORPHINE
     Dosage: 10 UG, UNK
     Route: 062

REACTIONS (2)
  - Therapeutic response unexpected [Unknown]
  - Hypohidrosis [Unknown]
